FAERS Safety Report 12442062 (Version 1)
Quarter: 2016Q2

REPORT INFORMATION
  Report Type: Spontaneous
  Country: US (occurrence: None)
  Receive Date: 20160606
  Receipt Date: 20160606
  Transmission Date: 20160815
  Serious: Yes (Life-Threatening)
  Sender: FDA-Public Use
  Company Number: None

PATIENT
  Age: 56 Year
  Sex: Male
  Weight: 82.3 kg

DRUGS (2)
  1. LISINOPRIL. [Suspect]
     Active Substance: LISINOPRIL
     Route: 048
     Dates: start: 20150914, end: 20160524
  2. ALFUZOSIN [Suspect]
     Active Substance: ALFUZOSIN
     Indication: HYPERTENSION
     Route: 048
     Dates: start: 20160513, end: 20160524

REACTIONS (2)
  - Anaphylactic reaction [None]
  - Angioedema [None]

NARRATIVE: CASE EVENT DATE: 20160524
